FAERS Safety Report 11526246 (Version 1)
Quarter: 2015Q3

REPORT INFORMATION
  Report Type: Spontaneous
  Country: IT (occurrence: IT)
  Receive Date: 20150919
  Receipt Date: 20150919
  Transmission Date: 20151125
  Serious: Yes (Hospitalization)
  Sender: FDA-Public Use
  Company Number: IT-AUROBINDO-AUR-APL-2015-08113

PATIENT
  Age: 66 Year
  Sex: Male

DRUGS (24)
  1. LEXOTAN [Suspect]
     Active Substance: BROMAZEPAM
     Dosage: 12 GTT DAILY
     Route: 048
  2. DELTACORTENE [Concomitant]
     Active Substance: PREDNISONE
     Indication: PRODUCT USED FOR UNKNOWN INDICATION
     Dosage: 12.5 MG, UNK
     Route: 048
  3. KCL-RETARD [Concomitant]
     Active Substance: POTASSIUM CHLORIDE
     Indication: PRODUCT USED FOR UNKNOWN INDICATION
     Dosage: 600 MG, UNK
     Route: 065
  4. DELTACORTENE [Concomitant]
     Active Substance: PREDNISONE
     Dosage: 12.5 MG
     Route: 048
  5. FOLINA                             /00024201/ [Concomitant]
     Active Substance: FOLIC ACID
     Dosage: 5 MG
     Route: 048
  6. ELOPRAM                            /00582602/ [Suspect]
     Active Substance: CITALOPRAM HYDROBROMIDE
     Dosage: 10 GTT DAILY
     Route: 048
  7. ELOPRAM                            /00582602/ [Suspect]
     Active Substance: CITALOPRAM HYDROBROMIDE
     Dosage: 10 GTT DAILY
     Route: 048
  8. DIBASE [Concomitant]
     Active Substance: CHOLECALCIFEROL
     Route: 048
  9. DANATROL [Concomitant]
     Active Substance: DANAZOL
     Dosage: 400 MG
     Route: 048
  10. ONCO CARBIDE [Concomitant]
     Active Substance: HYDROXYUREA
     Dosage: 500 MG
     Route: 048
  11. ONCO CARBIDE [Concomitant]
     Active Substance: HYDROXYUREA
     Dosage: 500 MG
     Route: 048
  12. ZEFFIX [Concomitant]
     Active Substance: LAMIVUDINE
     Indication: PRODUCT USED FOR UNKNOWN INDICATION
     Dosage: UNK
     Route: 065
  13. LEXOTAN [Suspect]
     Active Substance: BROMAZEPAM
     Indication: PRODUCT USED FOR UNKNOWN INDICATION
     Dosage: 12 GTT, DAILY
     Route: 048
  14. DIBASE [Concomitant]
     Active Substance: CHOLECALCIFEROL
     Indication: PRODUCT USED FOR UNKNOWN INDICATION
     Dosage: 25.000 UI/2.5 ML
     Route: 048
  15. ONCO CARBIDE [Concomitant]
     Active Substance: HYDROXYUREA
     Indication: PRODUCT USED FOR UNKNOWN INDICATION
     Dosage: 500 MG, UNK
     Route: 048
  16. REPAGLINIDE TABLET [Suspect]
     Active Substance: REPAGLINIDE
     Indication: DIABETES MELLITUS
     Dosage: UNK
     Route: 048
  17. DANATROL [Concomitant]
     Active Substance: DANAZOL
     Indication: PRODUCT USED FOR UNKNOWN INDICATION
     Dosage: 400 MG, UNK
     Route: 048
  18. DANATROL [Concomitant]
     Active Substance: DANAZOL
     Dosage: 400 MG
     Route: 048
  19. LEXOTAN [Suspect]
     Active Substance: BROMAZEPAM
     Dosage: 12 GTT DAILY
     Route: 048
  20. ELOPRAM                            /00582602/ [Suspect]
     Active Substance: CITALOPRAM HYDROBROMIDE
     Indication: PRODUCT USED FOR UNKNOWN INDICATION
     Dosage: 10 GTT, DAILY
     Route: 048
  21. DIBASE [Concomitant]
     Active Substance: CHOLECALCIFEROL
     Route: 048
  22. DELTACORTENE [Concomitant]
     Active Substance: PREDNISONE
     Dosage: 12.5 MG
     Route: 048
  23. FOLINA                             /00024201/ [Concomitant]
     Active Substance: FOLIC ACID
     Indication: PRODUCT USED FOR UNKNOWN INDICATION
     Dosage: 5 MG, UNK
     Route: 048
  24. FOLINA                             /00024201/ [Concomitant]
     Active Substance: FOLIC ACID
     Dosage: 5 MG
     Route: 048

REACTIONS (11)
  - White blood cell count decreased [Recovering/Resolving]
  - Psychomotor retardation [Recovering/Resolving]
  - Alanine aminotransferase increased [Recovering/Resolving]
  - Red blood cell count decreased [Recovering/Resolving]
  - Sopor [Recovering/Resolving]
  - Hypoglycaemia [Recovering/Resolving]
  - Hyperhidrosis [Recovering/Resolving]
  - Haemoglobin decreased [Recovering/Resolving]
  - Aphasia [Recovering/Resolving]
  - Haematocrit decreased [Recovering/Resolving]
  - Blood creatine phosphokinase decreased [Recovering/Resolving]

NARRATIVE: CASE EVENT DATE: 20150728
